FAERS Safety Report 21288261 (Version 1)
Quarter: 2022Q3

REPORT INFORMATION
  Report Type: Spontaneous
  Country: US (occurrence: US)
  Receive Date: 20220902
  Receipt Date: 20220902
  Transmission Date: 20221027
  Serious: Yes (Other)
  Sender: FDA-Public Use
  Company Number: US-ABBVIE-22K-163-4467451-00

PATIENT
  Sex: Male

DRUGS (1)
  1. IMBRUVICA [Suspect]
     Active Substance: IBRUTINIB
     Indication: Product used for unknown indication
     Route: 048
     Dates: start: 2019, end: 202206

REACTIONS (3)
  - Skin squamous cell carcinoma recurrent [Recovered/Resolved]
  - Basal cell carcinoma [Recovered/Resolved]
  - Malignant melanoma [Recovering/Resolving]

NARRATIVE: CASE EVENT DATE: 20200101
